FAERS Safety Report 7358275-5 (Version None)
Quarter: 2011Q1

REPORT INFORMATION
  Report Type: 
  Country: None (occurrence: None)
  Receive Date: 20110317
  Receipt Date: 20110307
  Transmission Date: 20110831
  Serious: Yes (Other)
  Sender: FDA-Public Use
  Company Number: US-ROCHE-764232

PATIENT

DRUGS (1)
  1. CAPECITABINE [Suspect]
     Dosage: STARTED ON MONDAY TILL FRIDAY FOR 2 WEEKS FOR EACH DOSE LEVEL OF RADIATION (TOTAL 4 DOSE LEVEL)
     Route: 048

REACTIONS (4)
  - INFECTION [None]
  - BILE DUCT OBSTRUCTION [None]
  - BLOOD BILIRUBIN INCREASED [None]
  - MUSCULOSKELETAL PAIN [None]
